FAERS Safety Report 21516910 (Version 1)
Quarter: 2022Q4

REPORT INFORMATION
  Report Type: Spontaneous
  Country: US (occurrence: US)
  Receive Date: 20221028
  Receipt Date: 20221028
  Transmission Date: 20230113
  Serious: Yes (Other)
  Sender: FDA-Public Use
  Company Number: US-BRISTOL-MYERS SQUIBB COMPANY-2022-127115

PATIENT
  Age: 86 Year
  Sex: Female
  Weight: 76.2 kg

DRUGS (6)
  1. ELIQUIS [Suspect]
     Active Substance: APIXABAN
     Indication: Cerebrovascular accident prophylaxis
     Dosage: DOSE : UNAVAILABLE;     FREQ : ONE TABLET TWICE DAILY
     Route: 048
     Dates: start: 2018
  2. METOPROLOL [Concomitant]
     Active Substance: METOPROLOL
     Indication: Blood pressure measurement
     Dosage: ONE OF THEM IS A LITTLE CAPSULE WHITE ON ONE END AND BURGUNDY ON THE OTHER
     Route: 065
  3. Chlorthal [Concomitant]
     Indication: Product used for unknown indication
     Route: 065
  4. OXYBUTYNIN [Concomitant]
     Active Substance: OXYBUTYNIN
     Indication: Product used for unknown indication
     Route: 065
  5. METRONIDAZOLE [Concomitant]
     Active Substance: METRONIDAZOLE
     Indication: Product used for unknown indication
     Dosage: DOSE = TAKE 20 MG FOR HEART; TINY PILL YOU CAN BREAK IN HALF.
     Route: 065
  6. VITAMINS NOS [Concomitant]
     Active Substance: VITAMINS
     Indication: Product used for unknown indication
     Route: 065

REACTIONS (5)
  - Confusional state [Unknown]
  - Cataract [Unknown]
  - Body height decreased [Unknown]
  - Visual impairment [Unknown]
  - Cardiac disorder [Unknown]
